FAERS Safety Report 5472457-9 (Version None)
Quarter: 2007Q3

REPORT INFORMATION
  Report Type: 
  Country: None (occurrence: None)
  Receive Date: 20070926
  Receipt Date: 20070910
  Transmission Date: 20080115
  Serious: Yes (Hospitalization)
  Sender: FDA-Public Use
  Company Number: 100#08#2007-03344

PATIENT
  Age: 61 Year
  Sex: Female

DRUGS (5)
  1. METFORMIN HCL [Suspect]
     Indication: TYPE 2 DIABETES MELLITUS
     Dosage: 1 G TWICE
  2. FUROSEMIDE [Suspect]
     Indication: DRUG USE FOR UNKNOWN INDICATION
     Dosage: 5 MG
  3. RAMIPRIL [Suspect]
     Indication: DRUG USE FOR UNKNOWN INDICATION
     Dosage: 2.5 MG
  4. ACENOCOUMARIN [Suspect]
     Indication: INTERNATIONAL NORMALISED RATIO
     Dosage: 3 MG ONCE DAILY
  5. ROFECOXIB [Suspect]
     Indication: PAIN
     Dosage: 50 MG TWICE DAILY ORAL
     Route: 048

REACTIONS (13)
  - BLOOD POTASSIUM INCREASED [None]
  - BLOOD PRESSURE DIASTOLIC DECREASED [None]
  - BLOOD SODIUM DECREASED [None]
  - COAGULOPATHY [None]
  - CONTINUOUS HAEMODIAFILTRATION [None]
  - DRUG INTERACTION [None]
  - GINGIVAL BLEEDING [None]
  - ILL-DEFINED DISORDER [None]
  - LACTIC ACIDOSIS [None]
  - POST PROCEDURAL COMPLICATION [None]
  - PROTHROMBIN TIME PROLONGED [None]
  - RENAL FAILURE [None]
  - RESPIRATORY FAILURE [None]
